FAERS Safety Report 5062056-5 (Version None)
Quarter: 2006Q3

REPORT INFORMATION
  Report Type: 
  Country: None (occurrence: None)
  Receive Date: 20060726
  Receipt Date: 20050905
  Transmission Date: 20061208
  Serious: Yes (Hospitalization, Other)
  Sender: FDA-Public Use
  Company Number: PHNU2005DE03053

PATIENT
  Age: 64 Year
  Sex: Female
  Weight: 67 kg

DRUGS (3)
  1. ZOMETA [Suspect]
     Indication: BREAST CANCER FEMALE
     Dosage: 4 MG, QMO
     Route: 042
     Dates: start: 19990101, end: 20050307
  2. ARIMIDEX [Concomitant]
     Indication: BREAST CANCER FEMALE
     Dosage: UNK, UNK
     Route: 048
     Dates: start: 20050208, end: 20050802
  3. CALCIMED D3 [Concomitant]
     Indication: HYPERTENSION
     Dosage: 1 DF, BID
     Route: 048
     Dates: start: 19990101

REACTIONS (7)
  - FEMUR FRACTURE [None]
  - FRACTURE [None]
  - IMPAIRED HEALING [None]
  - INTERNAL FIXATION OF FRACTURE [None]
  - OSTEOSYNTHESIS [None]
  - PRIMARY SEQUESTRUM [None]
  - PSEUDARTHROSIS [None]
